FAERS Safety Report 16841881 (Version 1)
Quarter: 2019Q3

REPORT INFORMATION
  Report Type: Report from Study
  Country: US (occurrence: US)
  Receive Date: 20190923
  Receipt Date: 20190923
  Transmission Date: 20191005
  Serious: Yes (Death)
  Sender: FDA-Public Use
  Company Number: US-EXELIXIS-CABO-19019725

PATIENT
  Sex: Female

DRUGS (2)
  1. COMETRIQ [Suspect]
     Active Substance: CABOZANTINIB S-MALATE
     Indication: MALIGNANT CONNECTIVE TISSUE NEOPLASM
     Dosage: 60 MG, QD
     Dates: start: 20181112
  2. COMETRIQ [Suspect]
     Active Substance: CABOZANTINIB S-MALATE
     Indication: METASTASES TO BONE
     Dosage: 60 MG, QD

REACTIONS (2)
  - Off label use [Unknown]
  - Death [Fatal]
